FAERS Safety Report 17164029 (Version 1)
Quarter: 2019Q4

REPORT INFORMATION
  Report Type: Spontaneous
  Country: US (occurrence: US)
  Receive Date: 20191217
  Receipt Date: 20191217
  Transmission Date: 20200122
  Serious: No
  Sender: FDA-Public Use
  Company Number: US-ROCHE-2470289

PATIENT
  Age: 42 Year
  Sex: Female
  Weight: 54.93 kg

DRUGS (1)
  1. HERCEPTIN HYLECTA [Suspect]
     Active Substance: TRASTUZUMAB AND HYALURONIDASE-OYSK
     Indication: BREAST CANCER METASTATIC
     Route: 058
     Dates: start: 20190723

REACTIONS (2)
  - Pruritus [Recovered/Resolved]
  - Injection site irritation [Recovered/Resolved]

NARRATIVE: CASE EVENT DATE: 20191106
